FAERS Safety Report 10734094 (Version 1)
Quarter: 2015Q1

REPORT INFORMATION
  Report Type: Spontaneous
  Country: FR (occurrence: FR)
  Receive Date: 20150123
  Receipt Date: 20150123
  Transmission Date: 20150721
  Serious: Yes (Hospitalization)
  Sender: FDA-Public Use
  Company Number: FR-BRISTOL-MYERS SQUIBB COMPANY-BMS-2015-004060

PATIENT
  Age: 87 Year
  Sex: Female

DRUGS (3)
  1. METFORMIN HYDROCHLORIDE. [Suspect]
     Active Substance: METFORMIN HYDROCHLORIDE
     Indication: TYPE 2 DIABETES MELLITUS
     Route: 065
  2. MONICOR LP [Concomitant]
     Active Substance: ISOSORBIDE MONONITRATE
     Route: 065
  3. SPIRAMYCINE/METRONIDAZOLE ALMUS [Concomitant]
     Route: 065

REACTIONS (7)
  - Leukocytosis [Unknown]
  - Rhabdomyolysis [Unknown]
  - Pneumonia aspiration [Unknown]
  - Acute kidney injury [Recovering/Resolving]
  - Overdose [Unknown]
  - Lactic acidosis [Unknown]
  - Renal atrophy [Unknown]

NARRATIVE: CASE EVENT DATE: 20141027
